FAERS Safety Report 13057330 (Version 1)
Quarter: 2016Q4

REPORT INFORMATION
  Report Type: Spontaneous
  Country: US (occurrence: US)
  Receive Date: 20161223
  Receipt Date: 20161223
  Transmission Date: 20170207
  Serious: No
  Sender: FDA-Public Use
  Company Number: US-ACORDA-ACO_128965_2016

PATIENT
  Age: 50 Year
  Sex: Female
  Weight: 78.93 kg

DRUGS (2)
  1. TIZANIDINE. [Suspect]
     Active Substance: TIZANIDINE
     Indication: PAIN
     Dosage: 4 MG, Q 8 HRS
  2. THERMACARE HEATWRAPS [Suspect]
     Active Substance: ACTIVATED CHARCOAL\IRON\SODIUM
     Indication: ARTHRITIS
     Dosage: 1 HEATWRAP AS DIRECTED
     Route: 061
     Dates: start: 20160916, end: 20160916

REACTIONS (5)
  - Thermal burn [Not Recovered/Not Resolved]
  - Drug ineffective for unapproved indication [Unknown]
  - Blister [Not Recovered/Not Resolved]
  - Arthritis [Unknown]
  - Pain in extremity [Unknown]

NARRATIVE: CASE EVENT DATE: 20160916
